FAERS Safety Report 7056262-8 (Version None)
Quarter: 2010Q4

REPORT INFORMATION
  Report Type: 
  Country: None (occurrence: None)
  Receive Date: 20101021
  Receipt Date: 20101008
  Transmission Date: 20110411
  Serious: Yes (Hospitalization)
  Sender: FDA-Public Use
  Company Number: JP-ELI_LILLY_AND_COMPANY-JP201009000430

PATIENT
  Sex: Male
  Weight: 64 kg

DRUGS (6)
  1. CYMBALTA [Suspect]
     Indication: DEPRESSION
     Dosage: 20 MG, DAILY (1/D)
     Route: 048
     Dates: start: 20100624, end: 20100702
  2. CYMBALTA [Suspect]
     Dosage: 40 MG, DAILY (1/D)
     Route: 048
     Dates: start: 20100703, end: 20100708
  3. CYMBALTA [Suspect]
     Dosage: 60 MG, DAILY (1/D)
     Route: 048
     Dates: start: 20100709, end: 20100806
  4. SULPIRIDE [Concomitant]
     Indication: DEPRESSION
     Dosage: 150 MG, DAILY (1/D)
     Route: 048
     Dates: start: 20080807, end: 20100806
  5. MAGLAX [Concomitant]
     Dosage: 990 MG, DAILY (1/D)
     Route: 048
     Dates: start: 20090911, end: 20100806
  6. MEILAX [Concomitant]
     Indication: ANXIETY
     Dosage: 1 MG, DAILY (1/D)
     Route: 048
     Dates: start: 20080807, end: 20100806

REACTIONS (1)
  - LIVER DISORDER [None]
